FAERS Safety Report 20822440 (Version 1)
Quarter: 2022Q2

REPORT INFORMATION
  Report Type: Spontaneous
  Country: US (occurrence: US)
  Receive Date: 20220512
  Receipt Date: 20220512
  Transmission Date: 20220721
  Serious: No
  Sender: FDA-Public Use
  Company Number: US-ELI_LILLY_AND_COMPANY-US202205004504

PATIENT
  Sex: Male

DRUGS (1)
  1. BEBTELOVIMAB [Suspect]
     Active Substance: BEBTELOVIMAB
     Indication: COVID-19
     Dosage: UNK, SINGLE
     Route: 042
     Dates: start: 20220430, end: 20220430

REACTIONS (5)
  - Dizziness [Unknown]
  - Dry throat [Unknown]
  - Nasal congestion [Unknown]
  - Feeling abnormal [Unknown]
  - Cough [Unknown]
